FAERS Safety Report 25993562 (Version 1)
Quarter: 2025Q4

REPORT INFORMATION
  Report Type: Spontaneous
  Country: CN (occurrence: CN)
  Receive Date: 20251104
  Receipt Date: 20251104
  Transmission Date: 20260119
  Serious: Yes (Hospitalization)
  Sender: ABBVIE
  Company Number: CN-ABBVIE-6526269

PATIENT
  Age: 66 Year
  Sex: Female

DRUGS (4)
  1. VENETOCLAX [Suspect]
     Active Substance: VENETOCLAX
     Indication: Chronic myelomonocytic leukaemia
     Dosage: 400 MILLIGRAM
     Route: 048
     Dates: start: 20251003, end: 20251014
  2. VENETOCLAX [Suspect]
     Active Substance: VENETOCLAX
     Indication: Chronic myelomonocytic leukaemia
     Dosage: 200 MILLIGRAM
     Route: 048
     Dates: start: 20251002, end: 20251002
  3. VENETOCLAX [Suspect]
     Active Substance: VENETOCLAX
     Indication: Chronic myelomonocytic leukaemia
     Dosage: 100 MILLIGRAM
     Route: 048
     Dates: start: 20251001, end: 20251001
  4. AZACITIDINE [Suspect]
     Active Substance: AZACITIDINE
     Indication: Chronic myelomonocytic leukaemia
     Dosage: 117 MILLIGRAM
     Route: 058
     Dates: start: 20251001, end: 20251007

REACTIONS (2)
  - Myelosuppression [Not Recovered/Not Resolved]
  - Agranulocytosis [Not Recovered/Not Resolved]

NARRATIVE: CASE EVENT DATE: 20251004
